FAERS Safety Report 4994734-8 (Version None)
Quarter: 2006Q2

REPORT INFORMATION
  Report Type: 
  Country: None (occurrence: None)
  Receive Date: 20060505
  Receipt Date: 20060427
  Transmission Date: 20061013
  Serious: Yes (Other)
  Sender: FDA-Public Use
  Company Number: GB-ABBOTT-06P-167-0332213-00

PATIENT
  Sex: Male

DRUGS (2)
  1. ERYTHROMYCIN [Suspect]
     Indication: DRUG EXPOSURE DURING PREGNANCY
     Route: 065
  2. BETAMETHASONE [Concomitant]
     Indication: DRUG EXPOSURE DURING PREGNANCY
     Route: 065

REACTIONS (4)
  - FEEDING DISORDER NEONATAL [None]
  - JAUNDICE NEONATAL [None]
  - PREMATURE BABY [None]
  - UMBILICAL CORD PROLAPSE [None]
